FAERS Safety Report 8660604 (Version 3)
Quarter: 2013Q4

REPORT INFORMATION
  Report Type: Spontaneous
  Country: US (occurrence: US)
  Receive Date: 20120711
  Receipt Date: 20131101
  Transmission Date: 20140711
  Serious: No
  Sender: FDA-Public Use
  Company Number: US-009507513-1207USA000451

PATIENT
  Sex: Female

DRUGS (3)
  1. INTRONA [Suspect]
     Indication: HEPATITIS C
     Dosage: 5 MG, QW
     Route: 058
     Dates: start: 2001, end: 201201
  2. PEGINTRON [Suspect]
  3. TELAPREVIR [Suspect]

REACTIONS (3)
  - Hepatitis C RNA increased [Recovering/Resolving]
  - Incorrect product storage [Unknown]
  - Overdose [Unknown]
